FAERS Safety Report 5703143-5 (Version None)
Quarter: 2008Q2

REPORT INFORMATION
  Report Type: 
  Country: None (occurrence: None)
  Receive Date: 20080411
  Receipt Date: 20080331
  Transmission Date: 20081010
  Serious: Yes (Other)
  Sender: FDA-Public Use
  Company Number: GR-PFIZER INC-2007107414

PATIENT
  Age: 37 Year
  Sex: Male
  Weight: 100 kg

DRUGS (4)
  1. LYRICA [Suspect]
     Indication: NEURALGIA
     Route: 048
     Dates: start: 20070601, end: 20070810
  2. VENLAFAXINE HCL [Concomitant]
     Route: 048
  3. LEXOTANIL [Concomitant]
     Route: 048
  4. LONARID-N [Concomitant]
     Route: 048

REACTIONS (4)
  - BLOOD FOLATE DECREASED [None]
  - BLOOD GLUCOSE INCREASED [None]
  - GINGIVAL BLEEDING [None]
  - PERIODONTAL DISEASE [None]
